FAERS Safety Report 8488630-1 (Version None)
Quarter: 2012Q3

REPORT INFORMATION
  Report Type: 
  Country: None (occurrence: None)
  Receive Date: 20120705
  Receipt Date: 20120702
  Transmission Date: 20120928
  Serious: Yes (Other)
  Sender: FDA-Public Use
  Company Number: PHEH2012US013039

PATIENT
  Sex: Female

DRUGS (5)
  1. VITAMIN D [Concomitant]
  2. PREVAGEN [Concomitant]
  3. RECLAST [Suspect]
     Dosage: 5 MG, UNK
     Route: 042
     Dates: start: 20120618
  4. ESTRADIOL [Concomitant]
  5. GEMFIBROZIL [Concomitant]
     Dosage: 600 MG, QD
     Dates: start: 20120606

REACTIONS (10)
  - PRURITUS [None]
  - ARTHRALGIA [None]
  - GAIT DISTURBANCE [None]
  - CHILLS [None]
  - PAIN IN EXTREMITY [None]
  - JOINT SWELLING [None]
  - FALL [None]
  - CONTUSION [None]
  - NECK PAIN [None]
  - MALAISE [None]
